FAERS Safety Report 9207180 (Version 1)
Quarter: 2013Q1

REPORT INFORMATION
  Report Type: Spontaneous
  Country: US (occurrence: None)
  Receive Date: 20120817
  Receipt Date: 20120817
  Transmission Date: 20140127
  Serious: Yes (Other)
  Sender: FDA-Public Use
  Company Number: ADR-2011-11703

PATIENT
  Age: 69 Year
  Sex: Male

DRUGS (2)
  1. BACLOFEN [Suspect]
     Route: 037
  2. DILAUDID [Concomitant]

REACTIONS (1)
  - Overdose [None]
